FAERS Safety Report 13575438 (Version 1)
Quarter: 2017Q2

REPORT INFORMATION
  Report Type: Spontaneous
  Country: US (occurrence: US)
  Receive Date: 20170523
  Receipt Date: 20170523
  Transmission Date: 20170830
  Serious: No
  Sender: FDA-Public Use
  Company Number: None

PATIENT
  Age: 78 Year
  Sex: Male

DRUGS (1)
  1. ZYTIGA [Suspect]
     Active Substance: ABIRATERONE ACETATE

REACTIONS (4)
  - Confusional state [None]
  - Dementia [None]
  - Memory impairment [None]
  - Treatment noncompliance [None]

NARRATIVE: CASE EVENT DATE: 20170523
